FAERS Safety Report 6758959-3 (Version None)
Quarter: 2010Q2

REPORT INFORMATION
  Report Type: 
  Country: None (occurrence: None)
  Receive Date: 20100607
  Receipt Date: 20100601
  Transmission Date: 20101027
  Serious: Yes (Death, Hospitalization, Other)
  Sender: FDA-Public Use
  Company Number: BR-BRISTOL-MYERS SQUIBB COMPANY-15122419

PATIENT
  Age: 74 Year
  Sex: Male

DRUGS (1)
  1. APROZIDE [Suspect]
     Indication: HYPERTENSION
     Dosage: TABS
     Route: 048
     Dates: end: 20090501

REACTIONS (6)
  - CHRONIC OBSTRUCTIVE PULMONARY DISEASE [None]
  - LUNG NEOPLASM MALIGNANT [None]
  - METASTASIS [None]
  - MULTI-ORGAN FAILURE [None]
  - NOSOCOMIAL INFECTION [None]
  - RENAL FAILURE [None]
